FAERS Safety Report 5660485-X (Version None)
Quarter: 2008Q1

REPORT INFORMATION
  Report Type: 
  Country: None (occurrence: None)
  Receive Date: 20080306
  Receipt Date: 20080226
  Transmission Date: 20080703
  Serious: Yes (Death, Life-Threatening, Hospitalization, Other)
  Sender: FDA-Public Use
  Company Number: 2006RL000186

PATIENT
  Sex: Male
  Weight: 65 kg

DRUGS (7)
  1. PROPAFENONE HCL [Suspect]
     Indication: ATRIAL FIBRILLATION
     Dosage: 150 MG; BID; PO
     Route: 048
     Dates: start: 20060513, end: 20060526
  2. TAMSULOSIN HCL [Concomitant]
  3. MONADUR [Concomitant]
  4. ATORVASTATIN CALCIUM [Concomitant]
  5. ACETYLSALICYLIC ACID [Concomitant]
  6. GINKGO BILOBA  LEAF  EXTRACT [Concomitant]
  7. DIGOXIN [Concomitant]

REACTIONS (7)
  - ANURIA [None]
  - ATRIOVENTRICULAR BLOCK [None]
  - BRADYCARDIA [None]
  - CARDIAC ARREST [None]
  - ELECTROMECHANICAL DISSOCIATION [None]
  - HYPOTENSION [None]
  - LOSS OF CONSCIOUSNESS [None]
